FAERS Safety Report 4397831-3 (Version None)
Quarter: 2004Q2

REPORT INFORMATION
  Report Type: 
  Country: None (occurrence: None)
  Receive Date: 20040621
  Receipt Date: 20040311
  Transmission Date: 20050107
  Serious: Yes (Death)
  Sender: FDA-Public Use
  Company Number: USA-2004-0014047

PATIENT
  Age: 49 Year
  Sex: Female

DRUGS (4)
  1. OXYCONTIN [Suspect]
     Indication: PAIN
     Dosage: 40 MG, BID
  2. OXYCODONE HCL [Suspect]
     Indication: PAIN
  3. ROXICODONE [Concomitant]
  4. SOMA [Concomitant]

REACTIONS (1)
  - OVERDOSE [None]
